FAERS Safety Report 8041014-2 (Version None)
Quarter: 2012Q1

REPORT INFORMATION
  Report Type: 
  Country: None (occurrence: None)
  Receive Date: 20120112
  Receipt Date: 20120109
  Transmission Date: 20120608
  Serious: Yes (Other)
  Sender: FDA-Public Use
  Company Number: GB-ACCORD-011958

PATIENT
  Age: 85 Year
  Sex: Male

DRUGS (7)
  1. LISINOPRIL [Concomitant]
     Route: 048
  2. BISOPROLOL FUMARATE [Concomitant]
     Route: 048
  3. ASPIRIN [Concomitant]
  4. LANSOPRAZOLE [Concomitant]
  5. FINASTERIDE [Suspect]
     Route: 048
     Dates: end: 20111201
  6. QUININE SULFATE [Concomitant]
     Dosage: ONE AT NIGHT
  7. ACETAMINOPHEN [Concomitant]

REACTIONS (1)
  - CEREBROVASCULAR ACCIDENT [None]
